FAERS Safety Report 23916565 (Version 1)
Quarter: 2024Q2

REPORT INFORMATION
  Report Type: Spontaneous
  Country: US (occurrence: None)
  Receive Date: 20240528
  Receipt Date: 20240528
  Transmission Date: 20240716
  Serious: Yes (Death)
  Sender: FDA-Public Use
  Company Number: None

PATIENT
  Age: 76 Year
  Sex: Male

DRUGS (1)
  1. ZEPZELCA [Suspect]
     Active Substance: LURBINECTEDIN
     Dosage: 6.784 MG ONCE INTRAVENOUS BOLUS
     Route: 040
     Dates: start: 20240524, end: 20240524

REACTIONS (6)
  - Renal impairment [None]
  - Hyperkalaemia [None]
  - Urine lactic acid increased [None]
  - General physical health deterioration [None]
  - Urine output decreased [None]
  - Drug ineffective [None]

NARRATIVE: CASE EVENT DATE: 20240525
